FAERS Safety Report 9468329 (Version 2)
Quarter: 2013Q4

REPORT INFORMATION
  Report Type: Spontaneous
  Country: US (occurrence: US)
  Receive Date: 20130821
  Receipt Date: 20131009
  Transmission Date: 20140711
  Serious: No
  Sender: FDA-Public Use
  Company Number: US-PFIZER INC-2013240847

PATIENT
  Age: 50 Year
  Sex: Female

DRUGS (3)
  1. ADVIL [Suspect]
     Indication: TENDONITIS
     Dosage: 200 MG, AS NEEDED
  2. ADVIL [Suspect]
     Indication: HEADACHE
  3. ADVIL [Suspect]
     Indication: HYPERSENSITIVITY

REACTIONS (2)
  - Off label use [Unknown]
  - Drug ineffective [Unknown]
